FAERS Safety Report 6765231-4 (Version None)
Quarter: 2010Q2

REPORT INFORMATION
  Report Type: 
  Country: None (occurrence: None)
  Receive Date: 20100610
  Receipt Date: 20100610
  Transmission Date: 20101027
  Serious: Yes (Hospitalization)
  Sender: FDA-Public Use
  Company Number: None

PATIENT
  Age: 66 Year
  Sex: Male

DRUGS (2)
  1. ARIPIPRAZOLE [Suspect]
     Indication: PANCYTOPENIA
     Dosage: 10 MG EVERY DAY PO
     Route: 048
     Dates: end: 20100603
  2. GALANTAMINE [Suspect]
     Indication: DEMENTIA
     Dosage: 16 MG EVERY DAY PO
     Route: 048
     Dates: end: 20100524

REACTIONS (4)
  - AGITATION [None]
  - AKATHISIA [None]
  - DEMENTIA [None]
  - PANCYTOPENIA [None]
